FAERS Safety Report 4721723-0 (Version None)
Quarter: 2005Q3

REPORT INFORMATION
  Report Type: 
  Country: None (occurrence: None)
  Receive Date: 20050721
  Receipt Date: 20050317
  Transmission Date: 20060218
  Serious: No
  Sender: FDA-Public Use
  Company Number: US-BRISTOL-MYERS SQUIBB COMPANY-12901237

PATIENT
  Age: 76 Year
  Sex: Female
  Weight: 61 kg

DRUGS (12)
  1. COUMADIN [Suspect]
     Route: 048
  2. ACIDOPHILUS [Concomitant]
  3. AVAPRO [Concomitant]
     Route: 048
  4. BETA CAROTENE [Concomitant]
  5. COENZYME Q10 [Concomitant]
  6. ERYTHROMYCIN [Concomitant]
     Indication: DENTAL DISORDER PROPHYLAXIS
     Dosage: ABOUT 4 X'S YEARLY BEFORE DENTAL WORK
  7. LOVASTATIN [Concomitant]
     Dates: start: 20041115
  8. SULAR [Concomitant]
  9. VITAMIN A [Concomitant]
  10. VITAMIN B COMPLEX CAP [Concomitant]
  11. ASCORBIC ACID [Concomitant]
  12. VITAMIN E [Concomitant]

REACTIONS (2)
  - INTERNATIONAL NORMALISED RATIO FLUCTUATION [None]
  - PROTHROMBIN TIME ABNORMAL [None]
